FAERS Safety Report 18446019 (Version 1)
Quarter: 2020Q4

REPORT INFORMATION
  Report Type: Spontaneous
  Country: DE (occurrence: DE)
  Receive Date: 20201030
  Receipt Date: 20201030
  Transmission Date: 20210114
  Serious: Yes (Life-Threatening, Hospitalization)
  Sender: FDA-Public Use
  Company Number: DE-ANIPHARMA-2020-DE-000249

PATIENT
  Sex: 0

DRUGS (4)
  1. APIXABAN [Concomitant]
     Active Substance: APIXABAN
     Dosage: 1-0-1
     Route: 065
  2. CANDESARTAN CILEXETIL. [Suspect]
     Active Substance: CANDESARTAN CILEXETIL
     Indication: PRODUCT USED FOR UNKNOWN INDICATION
     Dosage: 4 MG UNK
     Route: 048
  3. METOPROLOL SUCCINATE. [Concomitant]
     Active Substance: METOPROLOL SUCCINATE
     Dosage: 1-0-1
     Route: 048
  4. TORASEMIDE [Concomitant]
     Active Substance: TORSEMIDE
     Dosage: UNKNOWN DOSE AND FREQUENCY
     Route: 065

REACTIONS (5)
  - Cardiac failure [Unknown]
  - Left ventricular dysfunction [Unknown]
  - Atrial fibrillation [Unknown]
  - Embolism [Unknown]
  - Mitral valve incompetence [Unknown]
